FAERS Safety Report 15827829 (Version 2)
Quarter: 2019Q1

REPORT INFORMATION
  Report Type: Report from Study
  Country: CH (occurrence: CH)
  Receive Date: 20190115
  Receipt Date: 20190319
  Transmission Date: 20190417
  Serious: Yes (Other)
  Sender: FDA-Public Use
  Company Number: PHHY2018CH191186

PATIENT
  Sex: Female
  Weight: 74.8 kg

DRUGS (8)
  1. FELODIPIN [Suspect]
     Active Substance: FELODIPINE
     Indication: CARDIAC FAILURE CHRONIC
     Dosage: UNK
     Route: 065
     Dates: start: 2010, end: 2013
  2. NEBILET [Suspect]
     Active Substance: NEBIVOLOL
     Indication: CARDIAC FAILURE CHRONIC
     Route: 065
  3. ISOPTIN [Suspect]
     Active Substance: VERAPAMIL HYDROCHLORIDE
     Indication: CARDIAC FAILURE CHRONIC
     Route: 065
  4. SOTALOL. [Suspect]
     Active Substance: SOTALOL
     Indication: CARDIAC FAILURE CHRONIC
     Route: 065
  5. BILOL [Suspect]
     Active Substance: BISOPROLOL
     Indication: CARDIAC FAILURE CHRONIC
     Dosage: UNK
     Route: 065
     Dates: start: 2010, end: 2013
  6. DIGOXIN. [Suspect]
     Active Substance: DIGOXIN
     Indication: CARDIAC FAILURE CHRONIC
     Route: 065
  7. TORASEMIDE [Suspect]
     Active Substance: TORSEMIDE
     Indication: PRODUCT USED FOR UNKNOWN INDICATION
     Dosage: UNK
     Route: 065
     Dates: start: 201808
  8. DIL [DILTIAZEM HYDROCHLORIDE] [Suspect]
     Active Substance: DILTIAZEM HYDROCHLORIDE
     Indication: CARDIAC FAILURE CHRONIC
     Dosage: UNK
     Route: 065
     Dates: start: 2010, end: 2013

REACTIONS (14)
  - Syncope [Recovered/Resolved]
  - Asthma [Unknown]
  - Inappropriate schedule of product administration [Unknown]
  - Pulmonary oedema [Unknown]
  - Dyspnoea [Unknown]
  - Discomfort [Unknown]
  - Weight increased [Unknown]
  - Heart rate irregular [Recovered/Resolved]
  - Gastrointestinal hypomotility [Unknown]
  - Atrial fibrillation [Recovered/Resolved]
  - Pericardial effusion [Unknown]
  - Drug intolerance [Unknown]
  - Nocturia [Unknown]
  - Cough [Unknown]

NARRATIVE: CASE EVENT DATE: 2009
